FAERS Safety Report 8348106-9 (Version None)
Quarter: 2012Q2

REPORT INFORMATION
  Report Type: 
  Country: None (occurrence: None)
  Receive Date: 20120509
  Receipt Date: 20120505
  Transmission Date: 20120825
  Serious: Yes (Hospitalization, Other)
  Sender: FDA-Public Use
  Company Number: PHHY2012FR028742

PATIENT
  Sex: Female
  Weight: 72 kg

DRUGS (13)
  1. PANTOPRAZOLE [Concomitant]
  2. FLECAINIDE ACETATE [Concomitant]
     Dosage: ONCE A DAY
     Dates: end: 20120101
  3. CORDARONE [Concomitant]
  4. COLCHICINE [Concomitant]
  5. VALSARTAN  AND HYDROCHLOROTHIAZIDE [Concomitant]
     Dosage: 160 / 25 MG ONCE A DAY
     Dates: end: 20120101
  6. NIDREL [Concomitant]
     Dosage: UNK UKN, UNK
     Dates: end: 20120101
  7. POTASSIUM CHLORIDE [Concomitant]
     Dosage: ONCE A DAY
     Dates: end: 20120101
  8. LEVOTHYROXINE SODIUM [Concomitant]
     Dosage: 150 MG, DAILY
     Dates: start: 20111202, end: 20120402
  9. ZOLEDRONOC ACID [Suspect]
     Indication: OSTEOPOROTIC FRACTURE
     Dosage: UNK UKN, UNK
     Route: 042
     Dates: start: 20111205
  10. FOLIC ACID [Concomitant]
  11. ALLOPURINOL [Concomitant]
  12. PREVISCAN [Concomitant]
     Dosage: 1.5 DF, UNK
  13. LERCANIDIPINE [Concomitant]

REACTIONS (11)
  - WEIGHT DECREASED [None]
  - MALNUTRITION [None]
  - BLOOD PRESSURE DECREASED [None]
  - GASTRIC HAEMORRHAGE [None]
  - TOXICITY TO VARIOUS AGENTS [None]
  - GASTROENTERITIS [None]
  - DEHYDRATION [None]
  - GASTRIC ULCER [None]
  - HAEMATEMESIS [None]
  - GASTROINTESTINAL ULCER [None]
  - RENAL FAILURE ACUTE [None]
